FAERS Safety Report 4861098-X (Version None)
Quarter: 2005Q4

REPORT INFORMATION
  Report Type: 
  Country: None (occurrence: None)
  Receive Date: 20051220
  Receipt Date: 20051214
  Transmission Date: 20060501
  Serious: Yes (Death, Hospitalization)
  Sender: FDA-Public Use
  Company Number: AUV-212

PATIENT
  Age: 27 Year
  Sex: Male

DRUGS (1)
  1. LAMIVUDINE [Suspect]
     Route: 048
     Dates: start: 20040729

REACTIONS (12)
  - ABDOMINAL DISTENSION [None]
  - ANOREXIA [None]
  - ASCITES [None]
  - HEPATIC FAILURE [None]
  - HEPATITIS B [None]
  - HEPATOMEGALY [None]
  - JAUNDICE [None]
  - LOSS OF CONSCIOUSNESS [None]
  - MALAISE [None]
  - NAUSEA [None]
  - SPLENOMEGALY [None]
  - VOMITING [None]
